FAERS Safety Report 12167830 (Version 1)
Quarter: 2016Q1

REPORT INFORMATION
  Report Type: Spontaneous
  Country: SE (occurrence: SE)
  Receive Date: 20160310
  Receipt Date: 20160310
  Transmission Date: 20160526
  Serious: Yes (Life-Threatening)
  Sender: FDA-Public Use
  Company Number: SE-JNJFOC-20160304484

PATIENT
  Age: 68 Year
  Sex: Female

DRUGS (1)
  1. REMICADE [Suspect]
     Active Substance: INFLIXIMAB
     Indication: CROHN^S DISEASE
     Dosage: 100 MG POWDER FOR CONCENTRATE FOR SOLUTION FOR INFUSION, SOLUTION
     Route: 042
     Dates: start: 2010, end: 20140319

REACTIONS (6)
  - Gastrointestinal disorder [Unknown]
  - Off label use [Unknown]
  - Therapeutic response decreased [Unknown]
  - Laryngeal cancer [Not Recovered/Not Resolved]
  - Product use issue [Unknown]
  - Diarrhoea [Unknown]

NARRATIVE: CASE EVENT DATE: 2010
